FAERS Safety Report 10038622 (Version 1)
Quarter: 2014Q1

REPORT INFORMATION
  Report Type: Spontaneous
  Country: US (occurrence: None)
  Receive Date: 20140306
  Receipt Date: 20140306
  Transmission Date: 20141002
  Serious: Yes (Hospitalization)
  Sender: FDA-Public Use
  Company Number: 163-21880-13070121

PATIENT
  Age: 91 Year
  Sex: Female

DRUGS (9)
  1. REVLIMID (LENALIDOMIDE) (15 MILLIGRAM, CAPSULES) [Suspect]
     Indication: MYELODYSPLASTIC SYNDROME
     Dosage: 1 IN 1 D
     Route: 048
     Dates: start: 20090409
  2. ASPIRIN (ACETYLSALICYLIC ACID) [Concomitant]
  3. CALCIUM CITRATE + D (CALCIUM CITRATE W/ COLECALCIFEROL) [Concomitant]
  4. GLYCOLAX (MACROGOL) [Concomitant]
  5. LORAZEPAM [Concomitant]
  6. OXYBUTYNIN CHLORIDE (OXYBUTYNIN HYDROCHLORIDE) [Concomitant]
  7. PROCRIT (ERYTHROPOIETIN) [Concomitant]
  8. SIMVASTATIN [Concomitant]
  9. VITAMIN B12 (CYANOCOBALAMIN) [Concomitant]

REACTIONS (1)
  - Back pain [None]
